FAERS Safety Report 4755862-5 (Version None)
Quarter: 2005Q3

REPORT INFORMATION
  Report Type: 
  Country: None (occurrence: None)
  Receive Date: 20050830
  Receipt Date: 20050616
  Transmission Date: 20060218
  Serious: Yes (Other)
  Sender: FDA-Public Use
  Company Number: US-BRISTOL-MYERS SQUIBB COMPANY-13006572

PATIENT
  Age: 67 Year
  Sex: Male

DRUGS (2)
  1. ERBITUX [Suspect]
     Indication: COLORECTAL CANCER METASTATIC
     Dosage: LOADING DOSE (970 MG). REC'D ABOUT 50 MG IN 6 MINUTES; INFUSION STOPPED.
     Route: 042
     Dates: start: 20050616, end: 20050616
  2. BENADRYL [Concomitant]
     Indication: PREMEDICATION
     Dates: start: 20050616, end: 20050616

REACTIONS (1)
  - INFUSION RELATED REACTION [None]
